FAERS Safety Report 7007149-8 (Version None)
Quarter: 2010Q3

REPORT INFORMATION
  Report Type: 
  Country: None (occurrence: None)
  Receive Date: 20100922
  Receipt Date: 20100916
  Transmission Date: 20110219
  Serious: Yes (Other)
  Sender: FDA-Public Use
  Company Number: IE-BRISTOL-MYERS SQUIBB COMPANY-15274046

PATIENT
  Sex: Male

DRUGS (1)
  1. SUSTIVA [Suspect]
     Dosage: THERAPY DURATION: FOR 1 WEEK

REACTIONS (1)
  - HAEMORRHAGE [None]
